FAERS Safety Report 9846795 (Version 1)
Quarter: 2014Q1

REPORT INFORMATION
  Report Type: Spontaneous
  Country: JP (occurrence: JP)
  Receive Date: 20140127
  Receipt Date: 20140127
  Transmission Date: 20141002
  Serious: Yes (Other)
  Sender: FDA-Public Use
  Company Number: PHHY2014JP009343

PATIENT
  Age: 49 Year
  Sex: Male
  Weight: 98 kg

DRUGS (1)
  1. SANDIMMUN [Suspect]
     Indication: BONE MARROW TRANSPLANT
     Dosage: 100 MG, DAILY
     Route: 042

REACTIONS (4)
  - Generalised oedema [Unknown]
  - Weight increased [Unknown]
  - Dehydration [Unknown]
  - Blood urea increased [Unknown]
